FAERS Safety Report 19887299 (Version 1)
Quarter: 2021Q3

REPORT INFORMATION
  Report Type: Report from Study
  Country: JP (occurrence: JP)
  Receive Date: 20210927
  Receipt Date: 20210927
  Transmission Date: 20211014
  Serious: Yes (Other)
  Sender: FDA-Public Use
  Company Number: JP-AMGEN-JPNNI2021144237

PATIENT
  Age: 49 Year
  Sex: Female
  Weight: 54.8 kg

DRUGS (9)
  1. APREMILAST [Suspect]
     Active Substance: APREMILAST
     Indication: BEHCET^S SYNDROME
     Dosage: 60 MILLIGRAM, BID
     Route: 048
     Dates: start: 20210318
  2. APREMILAST [Suspect]
     Active Substance: APREMILAST
     Indication: MOUTH ULCERATION
  3. ASPARA POTASSIUM [Concomitant]
     Active Substance: POTASSIUM ASPARTATE
     Dosage: 900 MILLIGRAM, QD
     Route: 048
  4. MOHRUS PAP XR [Concomitant]
     Active Substance: KETOPROFEN
     Indication: ARTHRITIS
     Dosage: UNK
  5. TAKECAB [Concomitant]
     Active Substance: VONOPRAZAN FUMARATE
     Indication: PROPHYLAXIS
     Dosage: 10 MILLIGRAM, QD
     Route: 048
  6. COLCHICINE. [Concomitant]
     Active Substance: COLCHICINE
     Indication: APHTHOUS ULCER
     Dosage: 1 MILLIGRAM, QD
     Route: 048
  7. BILANOA [Concomitant]
     Active Substance: BILASTINE
     Indication: PROPHYLAXIS
     Dosage: 20 MILLIGRAM, QD
     Route: 048
     Dates: end: 20210415
  8. LOXOPROFEN SODIUM HYDRATE [Concomitant]
     Active Substance: LOXOPROFEN SODIUM DIHYDRATE
     Indication: ARTHRITIS
     Dosage: 120 MILLIGRAM, QD
     Route: 048
  9. HUMIRA [Concomitant]
     Active Substance: ADALIMUMAB
     Indication: ILEAL ULCER
     Dosage: 40 MILLIGRAM, QD
     Dates: end: 20210415

REACTIONS (1)
  - Meniere^s disease [Recovering/Resolving]

NARRATIVE: CASE EVENT DATE: 20210520
